FAERS Safety Report 22270738 (Version 2)
Quarter: 2023Q2

REPORT INFORMATION
  Report Type: Other
  Country: US (occurrence: None)
  Receive Date: 20230501
  Receipt Date: 20230505
  Transmission Date: 20230722
  Serious: Yes (Hospitalization, Other)
  Sender: FDA-Public Use
  Company Number: US-ROCHE-3334699

PATIENT
  Age: 63 Year
  Sex: Male
  Weight: 81.720 kg

DRUGS (10)
  1. OCREVUS [Suspect]
     Active Substance: OCRELIZUMAB
     Indication: Secondary progressive multiple sclerosis
     Dosage: DOT: 06/OCT/2022, 20/OCT/2022
     Route: 042
     Dates: start: 202210
  2. FLOMAX [Concomitant]
     Active Substance: TAMSULOSIN HYDROCHLORIDE
     Indication: Pollakiuria
     Route: 048
     Dates: start: 2021
  3. LIORESAL [Concomitant]
     Active Substance: BACLOFEN
     Dosage: 2 TABLETS, 3 TIMES PER DAY
     Route: 048
     Dates: start: 2021
  4. LEVOTHYROXINE [Concomitant]
     Active Substance: LEVOTHYROXINE
     Dosage: IN MORNING
     Route: 048
     Dates: start: 2021
  5. TRAZODONE [Concomitant]
     Active Substance: TRAZODONE HYDROCHLORIDE
     Indication: Insomnia
     Dosage: AT NIGHT
     Route: 048
     Dates: start: 202303
  6. VITAMIN B12 [Concomitant]
     Active Substance: CYANOCOBALAMIN
     Dosage: 5,000 MCG
  7. HERBAL DRUGS (UNK INGREDIENTS) [Concomitant]
     Route: 048
  8. MOTRIN [Concomitant]
     Active Substance: IBUPROFEN
  9. MELATONIN [Concomitant]
     Active Substance: MELATONIN
  10. DESYREL [Concomitant]
     Active Substance: TRAZODONE HYDROCHLORIDE

REACTIONS (7)
  - Urinary tract infection [Recovered/Resolved]
  - Sepsis [Recovered/Resolved]
  - Pyrexia [Recovered/Resolved]
  - Fall [Unknown]
  - Multiple sclerosis relapse [Unknown]
  - White blood cell disorder [Unknown]
  - Neutrophil count abnormal [Unknown]

NARRATIVE: CASE EVENT DATE: 20221001
